FAERS Safety Report 9153340 (Version 1)
Quarter: 2013Q1

REPORT INFORMATION
  Report Type: Spontaneous
  Country: CO (occurrence: CO)
  Receive Date: 20130311
  Receipt Date: 20130311
  Transmission Date: 20140127
  Serious: Yes (Other)
  Sender: FDA-Public Use
  Company Number: CO-AMGEN-COLSP2013015898

PATIENT
  Age: 65 Year
  Sex: Female

DRUGS (7)
  1. ENBREL [Suspect]
     Indication: RHEUMATOID ARTHRITIS
     Dosage: 50 MG, WEEKLY
     Route: 058
     Dates: start: 2009, end: 201301
  2. CALTRATE WITH VITAMIN D [Suspect]
     Indication: OSTEOPOROSIS
     Dosage: 600 MG, 1X/DAY
     Route: 048
     Dates: start: 2001
  3. DEFLAZACORT [Concomitant]
     Indication: RHEUMATOID ARTHRITIS
     Dosage: 6 MG, 1X/DAY
     Route: 048
     Dates: start: 1998
  4. METHOTREXATE [Concomitant]
     Indication: RHEUMATOID ARTHRITIS
     Dosage: 5 TABLETS OF 2.5MG, WEEKLY
     Route: 048
     Dates: start: 2003
  5. FOLIC ACID [Concomitant]
     Dosage: 600 MG, UNK
     Dates: start: 2003
  6. VITAMIN D /00107901/ [Concomitant]
     Dosage: 2000 IU, UNK
  7. ACTONEL [Concomitant]
     Dosage: UNK
     Route: 065
     Dates: start: 2004

REACTIONS (4)
  - Limb injury [Recovering/Resolving]
  - Inflammation [Unknown]
  - Urinary tract infection [Recovered/Resolved]
  - Drug ineffective [Not Recovered/Not Resolved]
